FAERS Safety Report 16651182 (Version 1)
Quarter: 2019Q3

REPORT INFORMATION
  Report Type: Spontaneous
  Country: FR (occurrence: FR)
  Receive Date: 20190731
  Receipt Date: 20190731
  Transmission Date: 20191004
  Serious: Yes (Hospitalization)
  Sender: FDA-Public Use
  Company Number: PHHY2019FR176315

PATIENT
  Age: 85 Year
  Sex: Male
  Weight: 79 kg

DRUGS (2)
  1. RIFAMPICIN [Suspect]
     Active Substance: RIFAMPIN
     Indication: ARTHRITIS INFECTIVE
     Dosage: 1800 MG, QD
     Route: 048
     Dates: start: 20190115, end: 20190121
  2. TAVANIC [Suspect]
     Active Substance: LEVOFLOXACIN
     Indication: ARTHRITIS INFECTIVE
     Dosage: 1000 MG, QD
     Route: 048
     Dates: start: 20190115, end: 20190121

REACTIONS (2)
  - Haemolytic anaemia [Recovered/Resolved]
  - Nightmare [Recovered/Resolved]

NARRATIVE: CASE EVENT DATE: 20190121
